FAERS Safety Report 23241839 (Version 3)
Quarter: 2025Q2

REPORT INFORMATION
  Report Type: Report from Study
  Country: US (occurrence: US)
  Receive Date: 20231129
  Receipt Date: 20250527
  Transmission Date: 20250717
  Serious: Yes (Death, Hospitalization)
  Sender: ROCHE
  Company Number: US-ROCHE-3466134

PATIENT
  Age: 11 Month
  Sex: Female
  Weight: 8.5 kg

DRUGS (2)
  1. EVRYSDI [Suspect]
     Active Substance: RISDIPLAM
     Indication: Spinal muscular atrophy
     Route: 048
     Dates: start: 20221116, end: 20231122
  2. EVRYSDI [Suspect]
     Active Substance: RISDIPLAM
     Route: 048
     Dates: start: 202211, end: 20231109

REACTIONS (5)
  - Respiratory failure [Fatal]
  - Treatment noncompliance [Unknown]
  - Neurological examination abnormal [Unknown]
  - Mobility decreased [Unknown]
  - Growth retardation [Unknown]

NARRATIVE: CASE EVENT DATE: 20230922
